FAERS Safety Report 14479388 (Version 4)
Quarter: 2018Q2

REPORT INFORMATION
  Report Type: Other
  Country: CA (occurrence: CA)
  Receive Date: 20180202
  Receipt Date: 20180422
  Transmission Date: 20180711
  Serious: Yes (Other)
  Sender: FDA-Public Use
  Company Number: CA-APOTEX-2018AP006091

PATIENT
  Age: 46 Year
  Sex: Female
  Weight: 77.98 kg

DRUGS (2)
  1. ESCITALOPRAM [Suspect]
     Active Substance: ESCITALOPRAM OXALATE
     Indication: OBSESSIVE-COMPULSIVE DISORDER
     Dosage: 20 MG, QD
     Route: 048
  2. ESCITALOPRAM [Suspect]
     Active Substance: ESCITALOPRAM OXALATE
     Indication: ANXIETY

REACTIONS (3)
  - Anxiety [Recovered/Resolved]
  - Drug ineffective [Recovered/Resolved]
  - Shock symptom [Recovered/Resolved]
